FAERS Safety Report 10141865 (Version 3)
Quarter: 2014Q2

REPORT INFORMATION
  Report Type: Spontaneous
  Country: TR (occurrence: TR)
  Receive Date: 20140429
  Receipt Date: 20140508
  Transmission Date: 20141212
  Serious: Yes (Hospitalization)
  Sender: FDA-Public Use
  Company Number: TR-PFIZER INC-2014111391

PATIENT
  Age: 82 Year
  Sex: Female

DRUGS (4)
  1. RAMIPRIL [Suspect]
     Dosage: 5 MG, DAILY
  2. MEMANTINE HYDROCHLORIDE [Interacting]
     Indication: DEMENTIA ALZHEIMER^S TYPE
     Dosage: 1 (0.5MG) DROP EACH NIGHT
  3. BISOPROLOL FUMARATE [Interacting]
     Dosage: 10 MG, DAILY
  4. ISOSORBIDE MONONITRATE [Interacting]
     Dosage: 50 MG, DAILY

REACTIONS (2)
  - Drug interaction [Recovered/Resolved]
  - Visual acuity reduced [Recovered/Resolved]
